FAERS Safety Report 7775472-5 (Version None)
Quarter: 2011Q3

REPORT INFORMATION
  Report Type: 
  Country: None (occurrence: None)
  Receive Date: 20110921
  Receipt Date: 20110603
  Transmission Date: 20111222
  Serious: Yes (Death)
  Sender: FDA-Public Use
  Company Number: UTC-007662

PATIENT
  Age: 81 Year
  Sex: Female

DRUGS (1)
  1. TYVASO [Suspect]
     Indication: PULMONARY ARTERIAL HYPERTENSION
     Dosage: 18-54 MICROGRAMS (4 IN 1 D),INHALATION
     Route: 055
     Dates: start: 20110406

REACTIONS (4)
  - MUSCULOSKELETAL PAIN [None]
  - BLOOD PRESSURE DECREASED [None]
  - BACK PAIN [None]
  - ACUTE MYOCARDIAL INFARCTION [None]
